FAERS Safety Report 16517071 (Version 1)
Quarter: 2019Q3

REPORT INFORMATION
  Report Type: Spontaneous
  Country: US (occurrence: US)
  Receive Date: 20190702
  Receipt Date: 20190702
  Transmission Date: 20191004
  Serious: No
  Sender: FDA-Public Use
  Company Number: US-BAYER-2019-124992

PATIENT
  Age: 80 Year
  Sex: Female
  Weight: 75 kg

DRUGS (2)
  1. EX LAX SENNA [Concomitant]
     Active Substance: SENNOSIDES A AND B
     Dosage: UNK
  2. MIRALAX [Suspect]
     Active Substance: POLYETHYLENE GLYCOL 3350
     Indication: GASTROINTESTINAL DISORDER
     Dosage: 17 G IN 4-8 OUNCES OF A BEVERAGE DOSE
     Route: 048
     Dates: start: 20190626

REACTIONS (2)
  - Vision blurred [Not Recovered/Not Resolved]
  - Oropharyngeal pain [Not Recovered/Not Resolved]

NARRATIVE: CASE EVENT DATE: 20190701
